FAERS Safety Report 13089971 (Version 1)
Quarter: 2017Q1

REPORT INFORMATION
  Report Type: Spontaneous
  Country: US (occurrence: US)
  Receive Date: 20170105
  Receipt Date: 20170105
  Transmission Date: 20170428
  Serious: Yes (Other)
  Sender: FDA-Public Use
  Company Number: US-TEVA-726468USA

PATIENT
  Age: 9 Year
  Sex: Male

DRUGS (6)
  1. CICLOSPORIN [Suspect]
     Active Substance: CYCLOSPORINE
     Indication: PROPHYLAXIS AGAINST GRAFT VERSUS HOST DISEASE
     Route: 065
  2. FLUDARABINE [Suspect]
     Active Substance: FLUDARABINE PHOSPHATE
     Dosage: 5 X 30 MG/SQM BODY SURFACE
     Route: 065
  3. THIOTEPA. [Suspect]
     Active Substance: THIOTEPA
     Dosage: 10 MG/KG BODY WEIGHT
     Route: 065
  4. TREOSULFAN [Suspect]
     Active Substance: TREOSULFAN
     Route: 065
  5. ANTITHYMOCYTE-GLOBULIN [Suspect]
     Active Substance: THYMOCYTE IMMUNE GLOBULIN NOS
     Dosage: 3 X 10MG/KG
     Route: 065
  6. METHOTREXATE. [Suspect]
     Active Substance: METHOTREXATE
     Dosage: 10 MG/SQM BODY SURFACE
     Route: 065

REACTIONS (4)
  - Soft tissue sarcoma [Recovered/Resolved]
  - Mucosal inflammation [Unknown]
  - Pneumonia cytomegaloviral [Unknown]
  - Undifferentiated sarcoma [Recovered/Resolved]
